FAERS Safety Report 6430315-7 (Version None)
Quarter: 2009Q4

REPORT INFORMATION
  Report Type: 
  Country: None (occurrence: None)
  Receive Date: 20091106
  Receipt Date: 20091026
  Transmission Date: 20100525
  Serious: Yes (Other)
  Sender: FDA-Public Use
  Company Number: FR-PFIZER INC-2009288904

PATIENT

DRUGS (1)
  1. METRONIDAZOLE AND METRONIDAZOLE BENZOATE AND METRONIDAZOLE HYDROCHLORI [Suspect]

REACTIONS (3)
  - CEREBELLAR SYNDROME [None]
  - CONVULSION [None]
  - POLYNEUROPATHY [None]
